FAERS Safety Report 24135548 (Version 1)
Quarter: 2024Q3

REPORT INFORMATION
  Report Type: Spontaneous
  Country: BR (occurrence: BR)
  Receive Date: 20240725
  Receipt Date: 20240725
  Transmission Date: 20241017
  Serious: Yes (Other)
  Sender: Phathom Pharmaceuticals
  Company Number: BR-PHATHOM PHARMACEUTICALS INC.-2024PHT00617

PATIENT
  Sex: Male
  Weight: 73 kg

DRUGS (2)
  1. VONOPRAZAN FUMARATE [Suspect]
     Active Substance: VONOPRAZAN FUMARATE
     Indication: Gastritis
     Dosage: UNK
     Route: 048
     Dates: start: 202312, end: 202401
  2. VONOPRAZAN FUMARATE [Suspect]
     Active Substance: VONOPRAZAN FUMARATE
     Indication: Hiatus hernia

REACTIONS (6)
  - Hiatus hernia [Unknown]
  - Rash macular [Unknown]
  - Haemorrhage [Unknown]
  - Skin disorder [Unknown]
  - Off label use [Unknown]
  - Incorrect product administration duration [Unknown]
